FAERS Safety Report 6046205-8 (Version None)
Quarter: 2009Q1

REPORT INFORMATION
  Report Type: 
  Country: None (occurrence: None)
  Receive Date: 20090121
  Receipt Date: 20090121
  Transmission Date: 20090719
  Serious: No
  Sender: FDA-Public Use
  Company Number: None

PATIENT
  Age: 65 Year
  Sex: Female
  Weight: 98.4306 kg

DRUGS (4)
  1. TRILEPTAL [Suspect]
     Indication: COMPLEX PARTIAL SEIZURES
     Dosage: 600 MG X2 POO
     Route: 048
     Dates: start: 20010901, end: 20071213
  2. TRILEPTAL [Suspect]
     Indication: TEMPORAL LOBE EPILEPSY
     Dosage: 600 MG X2 POO
     Route: 048
     Dates: start: 20010901, end: 20071213
  3. LAMICTAL [Suspect]
     Indication: ELECTROENCEPHALOGRAM ABNORMAL
     Dosage: 200 MG X2 PO
     Route: 048
     Dates: start: 20070515, end: 20071214
  4. LAMICTAL [Suspect]
     Indication: ROAD TRAFFIC ACCIDENT
     Dosage: 200 MG X2 PO
     Route: 048
     Dates: start: 20070515, end: 20071214

REACTIONS (2)
  - HALLUCINATION [None]
  - MANIA [None]
